FAERS Safety Report 9730520 (Version 5)
Quarter: 2014Q1

REPORT INFORMATION
  Report Type: Spontaneous
  Country: JP (occurrence: JP)
  Receive Date: 20131202
  Receipt Date: 20140207
  Transmission Date: 20141002
  Serious: Yes (Other)
  Sender: FDA-Public Use
  Company Number: JP-ASTRAZENECA-2013SE86820

PATIENT
  Age: 355 Day
  Sex: Male
  Weight: 8.7 kg

DRUGS (24)
  1. SYNAGIS [Suspect]
     Indication: ANTIVIRAL PROPHYLAXIS
     Route: 030
     Dates: start: 20130927, end: 20130927
  2. SYNAGIS [Suspect]
     Indication: TRISOMY 21
     Route: 030
     Dates: start: 20130927, end: 20130927
  3. SYNAGIS [Suspect]
     Indication: ANTIVIRAL PROPHYLAXIS
     Route: 030
     Dates: start: 20131025, end: 20131025
  4. SYNAGIS [Suspect]
     Indication: TRISOMY 21
     Route: 030
     Dates: start: 20131025, end: 20131025
  5. SYNAGIS [Suspect]
     Indication: ANTIVIRAL PROPHYLAXIS
     Route: 030
     Dates: start: 20131122
  6. SYNAGIS [Suspect]
     Indication: TRISOMY 21
     Route: 030
     Dates: start: 20131122
  7. RINDERON [Suspect]
     Indication: ASTHMA
     Route: 048
     Dates: start: 20130927, end: 20130930
  8. RINDERON [Suspect]
     Indication: ASTHMA
     Route: 048
     Dates: start: 20131025, end: 20131028
  9. LEVOTHYROXINE SODIUM HYDRATE [Concomitant]
     Indication: PRODUCT USED FOR UNKNOWN INDICATION
     Route: 048
     Dates: start: 20130501
  10. PRANLUKAST HYDRATE [Concomitant]
     Indication: RESPIRATORY DISORDER
     Route: 048
     Dates: start: 20130605
  11. PRANLUKAST HYDRATE [Concomitant]
     Indication: ASTHMA
     Route: 048
     Dates: start: 20130605
  12. L-CARBOCYSTEINE [Concomitant]
     Indication: RESPIRATORY DISORDER
     Route: 048
     Dates: start: 20130927
  13. L-CARBOCYSTEINE [Concomitant]
     Indication: ASTHMA
     Route: 048
     Dates: start: 20130927
  14. AMBROXOL HYDROCHLORIDE [Concomitant]
     Indication: RESPIRATORY DISORDER
     Route: 048
     Dates: start: 20130927
  15. AMBROXOL HYDROCHLORIDE [Concomitant]
     Indication: ASTHMA
     Route: 048
     Dates: start: 20130927
  16. TIPEPIDINE HIBENZATE [Concomitant]
     Indication: RESPIRATORY DISORDER
     Route: 048
     Dates: start: 20130927
  17. TIPEPIDINE HIBENZATE [Concomitant]
     Indication: ASTHMA
     Route: 048
     Dates: start: 20130927
  18. POLAPREZINC [Concomitant]
     Indication: BODY HEIGHT ABNORMAL
     Route: 048
     Dates: start: 20130605
  19. POLAPREZINC [Concomitant]
     Indication: INCREASED APPETITE
     Route: 048
     Dates: start: 20130605
  20. POLAPREZINC [Concomitant]
     Indication: ZINC DEFICIENCY
     Route: 048
     Dates: start: 20130605
  21. MEQUITAZINE [Concomitant]
     Indication: RESPIRATORY DISORDER
     Dates: start: 20130927
  22. MEQUITAZINE [Concomitant]
     Indication: ASTHMA
     Dates: start: 20130927
  23. TULOBUTEROL HYDROCHLORIDE [Concomitant]
     Indication: RESPIRATORY DISORDER
     Route: 062
     Dates: start: 20130927
  24. TULOBUTEROL HYDROCHLORIDE [Concomitant]
     Indication: ASTHMA
     Route: 062
     Dates: start: 20130927

REACTIONS (5)
  - Haematochezia [Recovered/Resolved]
  - Gastrointestinal mucosal disorder [Unknown]
  - Culture stool positive [Unknown]
  - Weight decreased [Recovered/Resolved]
  - Pyrexia [Recovered/Resolved]
